FAERS Safety Report 21677776 (Version 1)
Quarter: 2022Q4

REPORT INFORMATION
  Report Type: Spontaneous
  Country: FR (occurrence: FR)
  Receive Date: 20221203
  Receipt Date: 20221203
  Transmission Date: 20230112
  Serious: Yes (Death)
  Sender: FDA-Public Use
  Company Number: FR-AFSSAPS-PC20222311

PATIENT
  Age: 65 Year
  Sex: Male

DRUGS (4)
  1. AMOXICILLIN [Suspect]
     Active Substance: AMOXICILLIN
     Indication: Dermo-hypodermitis
     Dosage: 1.5 GRAM, ONCE A DAY (500 MG MORNING, NOON AND EVENING)
     Route: 048
     Dates: start: 20201204, end: 20201214
  2. AUGMENTIN [Suspect]
     Active Substance: AMOXICILLIN\CLAVULANATE POTASSIUM
     Indication: Dermo-hypodermitis
     Dosage: 3 GRAM, ONCE A DAY (MORNING, NOON AND EVENING)
     Route: 048
     Dates: start: 20201204, end: 20201214
  3. IPILIMUMAB [Suspect]
     Active Substance: IPILIMUMAB
     Indication: Metastatic malignant melanoma
     Dosage: 1 DOSAGE FORM
     Route: 042
     Dates: start: 20201215
  4. NIVOLUMAB [Suspect]
     Active Substance: NIVOLUMAB
     Indication: Metastatic malignant melanoma
     Dosage: 1 DOSAGE FORM
     Route: 042
     Dates: start: 20201215, end: 202012

REACTIONS (1)
  - Rash maculo-papular [Fatal]

NARRATIVE: CASE EVENT DATE: 20201218
